FAERS Safety Report 4402397-5 (Version None)
Quarter: 2004Q3

REPORT INFORMATION
  Report Type: 
  Country: None (occurrence: None)
  Receive Date: 20040713
  Receipt Date: 20040630
  Transmission Date: 20050211
  Serious: Yes (Other)
  Sender: FDA-Public Use
  Company Number: 200410514BCA

PATIENT
  Sex: Male

DRUGS (40)
  1. PLASBUMIN-25 [Suspect]
     Dosage: 100 ML, TOTAL DAILY, INTRAVENOUS
     Route: 042
     Dates: start: 19920111
  2. PLASBUMIN-5 [Suspect]
     Dosage: 2 U, ONCE, INTRAVENOUS
     Route: 042
     Dates: start: 19920109
  3. RED BLOOD CELLS [Suspect]
     Dosage: INTRAVENOUS
     Route: 042
     Dates: start: 19920109
  4. RED BLOOD CELLS [Suspect]
     Dosage: INTRAVENOUS
     Route: 042
     Dates: start: 19920110
  5. RED BLOOD CELLS [Suspect]
     Dosage: INTRAVENOUS
     Route: 042
     Dates: start: 19920116
  6. PLATELETS [Suspect]
     Dosage: ONCE, INTRAVENOUS
     Route: 042
     Dates: start: 19920109
  7. PLATELETS [Suspect]
     Dosage: ONCE, INTRAVENOUS
     Route: 042
     Dates: start: 19920110
  8. PLATELETS [Suspect]
     Dosage: ONCE, INTRAVENOUS
     Route: 042
     Dates: start: 19920112
  9. PLATELETS [Suspect]
  10. PLATELETS [Suspect]
  11. PLATELETS [Suspect]
  12. PLATELETS [Suspect]
  13. PLATELETS [Suspect]
  14. PLATELETS [Suspect]
  15. PLATELETS [Suspect]
  16. PLATELETS [Suspect]
  17. PLATELETS [Suspect]
  18. PLATELETS [Suspect]
  19. PLATELETS [Suspect]
  20. PLATELETS [Suspect]
  21. PLATELETS [Suspect]
  22. PLATELETS [Suspect]
  23. PLATELETS [Suspect]
  24. PLATELETS [Suspect]
  25. PLATELETS [Suspect]
  26. PLASMA PROTEIN FRACTION (HUMAN) [Suspect]
     Dosage: ONCE, INTRAVENOUS
     Route: 042
     Dates: start: 19920110
  27. PLASMA PROTEIN FRACTION (HUMAN) [Suspect]
     Dosage: ONCE, INTRAVENOUS
     Route: 042
     Dates: start: 19920116
  28. PLASMA PROTEIN FRACTION (HUMAN) [Suspect]
  29. PLASMA PROTEIN FRACTION (HUMAN) [Suspect]
  30. PLASMA PROTEIN FRACTION (HUMAN) [Suspect]
  31. CRYOPRECIPITATE (PLAMA PROTEIN FRACTION (HUMAN)) [Suspect]
     Dosage: ONCE, INTRAVENOUS
     Route: 042
     Dates: start: 19920110
  32. CRYOPRECIPITATED AHF [Suspect]
  33. CRYOPRECIPITATED AHF [Suspect]
  34. CRYOPRECIPITATED AHF [Suspect]
  35. CRYOPRECIPITATED AHF [Suspect]
  36. CRYOPRECIPITATED AHF [Suspect]
  37. CRYOPRECIPITATED AHF [Suspect]
  38. CRYOPRECIPITATED AHF [Suspect]
  39. CRYOPRECIPITATED AHF [Suspect]
  40. CRYOPRECIPITATED AHF [Suspect]

REACTIONS (1)
  - HEPATITIS C POSITIVE [None]
